FAERS Safety Report 18923159 (Version 1)
Quarter: 2021Q1

REPORT INFORMATION
  Report Type: Spontaneous
  Country: AU (occurrence: AU)
  Receive Date: 20210222
  Receipt Date: 20210222
  Transmission Date: 20210420
  Serious: Yes (Other)
  Sender: FDA-Public Use
  Company Number: AU-IGSA-SR10009807

PATIENT
  Age: 65 Year
  Sex: Female

DRUGS (2)
  1. FLEBOGAMMA DIF [Suspect]
     Active Substance: HUMAN IMMUNOGLOBULIN G
     Indication: NON-HODGKIN^S LYMPHOMA
     Dosage: 40 G, UNK
     Route: 042
     Dates: start: 20191218, end: 20191218
  2. FLEBOGAMMA DIF [Suspect]
     Active Substance: HUMAN IMMUNOGLOBULIN G
     Indication: HYPOGAMMAGLOBULINAEMIA

REACTIONS (12)
  - Infusion related reaction [Recovered/Resolved]
  - Agitation [Unknown]
  - Dyspnoea [Unknown]
  - Pallor [Unknown]
  - Respiratory acidosis [Unknown]
  - Abdominal pain [Unknown]
  - Headache [Unknown]
  - Chills [Unknown]
  - Wheezing [Unknown]
  - Anaphylactic reaction [Recovered/Resolved]
  - Back pain [Recovered/Resolved]
  - Paraesthesia [Unknown]

NARRATIVE: CASE EVENT DATE: 20191218
